FAERS Safety Report 21810820 (Version 6)
Quarter: 2023Q1

REPORT INFORMATION
  Report Type: Spontaneous
  Country: US (occurrence: US)
  Receive Date: 20230103
  Receipt Date: 20230301
  Transmission Date: 20230417
  Serious: Yes (Other)
  Sender: FDA-Public Use
  Company Number: US-PFIZER INC-PV202200132382

PATIENT
  Age: 64 Year
  Sex: Female
  Weight: 68.04 kg

DRUGS (4)
  1. GENOTROPIN [Suspect]
     Active Substance: SOMATROPIN
     Indication: Pituitary tumour removal
     Dosage: 0.2 MG, 1X/DAY
     Dates: start: 20221101
  2. GENOTROPIN [Suspect]
     Active Substance: SOMATROPIN
     Indication: Growth hormone deficiency
  3. SYNTHROID [Concomitant]
     Active Substance: LEVOTHYROXINE SODIUM
     Indication: Thyroid nodule removal
     Dosage: UNK
  4. LIOTHYRONINE [LIOTHYRONINE SODIUM] [Concomitant]
     Indication: Supplementation therapy
     Dosage: UNK

REACTIONS (9)
  - Pituitary tumour [Unknown]
  - Drug dose omission by device [Unknown]
  - Device mechanical issue [Unknown]
  - Device leakage [Unknown]
  - Drug withdrawal syndrome [Unknown]
  - Irritability [Unknown]
  - Throat irritation [Unknown]
  - Hypoacusis [Unknown]
  - Visual impairment [Unknown]

NARRATIVE: CASE EVENT DATE: 20220101
